FAERS Safety Report 7351302-0 (Version None)
Quarter: 2011Q1

REPORT INFORMATION
  Report Type: 
  Country: None (occurrence: None)
  Receive Date: 20110304
  Receipt Date: 20110225
  Transmission Date: 20110831
  Serious: Yes (Death, Hospitalization, Other)
  Sender: FDA-Public Use
  Company Number: 2010US004328

PATIENT
  Age: 65 Year
  Sex: Male

DRUGS (17)
  1. PREDNISONE TAB [Concomitant]
  2. VELCADE [Concomitant]
  3. CORTICOSTEROID NOS (CORTICOSTEROID NOS) [Concomitant]
  4. METOPROLOL (METOPROLOL) [Concomitant]
  5. JANUVIA [Concomitant]
  6. INSULIN (INSULIN) [Concomitant]
  7. MELPHALAN HYDROCHLORIDE [Concomitant]
  8. LIPITOR [Concomitant]
  9. SERTRALINE (SERTRALINE) [Concomitant]
  10. LANTUS [Concomitant]
  11. PROGRAF [Suspect]
     Indication: RENAL TRANSPLANT
     Dosage: 2.5 MG, UID/QD, ORAL
     Route: 048
     Dates: start: 20091120
  12. TRAZODONE (TRAZODONE) [Concomitant]
  13. ASPIRIN [Concomitant]
  14. FAMVIR [Concomitant]
  15. ALEFACEPT (ALEFACEPT) INJECTION [Suspect]
     Indication: RENAL TRANSPLANT
     Dosage: 7.5 MG, TOTAL DOSE, IV NOS
     Route: 042
     Dates: start: 20091120, end: 20091120
  16. ALEFACEPT (ALEFACEPT) INJECTION [Suspect]
     Indication: RENAL TRANSPLANT
     Dosage: 7.5 MG, TOTAL DOSE, IV NOS
     Route: 042
     Dates: start: 20091123, end: 20091123
  17. ALEFACEPT (ALEFACEPT) INJECTION [Suspect]
     Indication: RENAL TRANSPLANT
     Dosage: 7.5 MG, TOTAL DOSE, IV NOS
     Route: 042
     Dates: start: 20091127, end: 20100310

REACTIONS (16)
  - ALPHA HAEMOLYTIC STREPTOCOCCAL INFECTION [None]
  - PULMONARY HYPERTENSION [None]
  - PNEUMONIA MYCOPLASMAL [None]
  - CANDIDIASIS [None]
  - BRONCHOPULMONARY ASPERGILLOSIS [None]
  - PLATELET COUNT DECREASED [None]
  - OXYGEN SATURATION DECREASED [None]
  - FEBRILE NEUTROPENIA [None]
  - FUNGAL INFECTION [None]
  - PSEUDOMONAS INFECTION [None]
  - STREPTOCOCCAL BACTERAEMIA [None]
  - LEUKOPENIA [None]
  - THROMBOCYTOPENIA [None]
  - RESPIRATORY FAILURE [None]
  - ASPERGILLOSIS [None]
  - BACTERIAL INFECTION [None]
